FAERS Safety Report 16486798 (Version 1)
Quarter: 2019Q3

REPORT INFORMATION
  Report Type: Spontaneous
  Country: US (occurrence: US)
  Receive Date: 20190625
  Receipt Date: 20190625
  Transmission Date: 20191004
  Serious: No
  Sender: FDA-Public Use
  Company Number: None

PATIENT
  Age: 36 Year
  Sex: Female
  Weight: 51.75 kg

DRUGS (1)
  1. AIMOVIG [Suspect]
     Active Substance: ERENUMAB-AOOE
     Indication: MIGRAINE
     Dosage: ?          OTHER FREQUENCY:MONTHLY;?
     Route: 058
     Dates: start: 20190329, end: 20190529

REACTIONS (7)
  - Constipation [None]
  - Depression [None]
  - Fatigue [None]
  - Myalgia [None]
  - Upper respiratory tract infection [None]
  - Aphthous ulcer [None]
  - Alopecia [None]
